FAERS Safety Report 23109170 (Version 1)
Quarter: 2023Q4

REPORT INFORMATION
  Report Type: Spontaneous
  Country: US (occurrence: US)
  Receive Date: 20231026
  Receipt Date: 20231026
  Transmission Date: 20240109
  Serious: No
  Sender: FDA-Public Use
  Company Number: US-PERRIGO-23US005037

PATIENT
  Sex: Female
  Weight: 54.422 kg

DRUGS (2)
  1. UNISOM SLEEPTABS [Suspect]
     Active Substance: DOXYLAMINE SUCCINATE
     Indication: Product used for unknown indication
     Dosage: 12.5 MG, UNKNOWN
     Route: 048
     Dates: start: 202304
  2. UNISOM SLEEPTABS [Suspect]
     Active Substance: DOXYLAMINE SUCCINATE
     Dosage: 25 MG , UNKNOWN
     Route: 048
     Dates: start: 202304

REACTIONS (3)
  - Somnolence [Unknown]
  - Brain fog [Unknown]
  - Underdose [Unknown]

NARRATIVE: CASE EVENT DATE: 20230401
